FAERS Safety Report 6973138-2 (Version None)
Quarter: 2010Q3

REPORT INFORMATION
  Report Type: 
  Country: None (occurrence: None)
  Receive Date: 20100909
  Receipt Date: 20100901
  Transmission Date: 20110219
  Serious: Yes (Hospitalization, Disabling)
  Sender: FDA-Public Use
  Company Number: US-ROCHE-532608

PATIENT
  Sex: Female
  Weight: 64.3 kg

DRUGS (4)
  1. BEVACIZUMAB [Suspect]
     Indication: COLON CANCER
     Dosage: 10 MG/KG, Q2W
     Route: 042
     Dates: start: 20070809
  2. IRINOTECAN HCL [Suspect]
     Indication: COLON CANCER
     Dosage: 174 MG, 1/WEEK
     Route: 042
     Dates: start: 20070809
  3. LEUCOVORIN CALCIUM [Suspect]
     Indication: COLON CANCER
     Dosage: 1250 MG, 1/WEEK
     Route: 042
     Dates: start: 20070809
  4. FLUOROURACIL [Suspect]
     Indication: COLON CANCER
     Dosage: 3130 MG, 1/WEEK
     Route: 042
     Dates: start: 20070809

REACTIONS (2)
  - CARDIAC FAILURE CONGESTIVE [None]
  - CARDIOMYOPATHY [None]
